FAERS Safety Report 5918443-3 (Version None)
Quarter: 2008Q4

REPORT INFORMATION
  Report Type: 
  Country: None (occurrence: None)
  Receive Date: 20081015
  Receipt Date: 20081008
  Transmission Date: 20090506
  Serious: Yes (Death)
  Sender: FDA-Public Use
  Company Number: US-JNJFOC-20081002728

PATIENT
  Sex: Female

DRUGS (1)
  1. FLEXERIL [Suspect]
     Indication: EPILEPSY

REACTIONS (2)
  - INCORRECT DRUG ADMINISTRATION DURATION [None]
  - INTENTIONAL SELF-INJURY [None]
